FAERS Safety Report 7570319-4 (Version None)
Quarter: 2011Q2

REPORT INFORMATION
  Report Type: 
  Country: None (occurrence: None)
  Receive Date: 20110622
  Receipt Date: 20110622
  Transmission Date: 20111010
  Serious: No
  Sender: FDA-Public Use
  Company Number: None

PATIENT
  Sex: Male
  Weight: 81.65 kg

DRUGS (2)
  1. TAXOL [Suspect]
     Dosage: 1249 MG
     Dates: end: 20110620
  2. CARBOPLATIN [Suspect]
     Dosage: 2580 MG
     Dates: end: 20110620

REACTIONS (1)
  - NEUTROPHIL COUNT ABNORMAL [None]
